FAERS Safety Report 7620981-2 (Version None)
Quarter: 2011Q3

REPORT INFORMATION
  Report Type: 
  Country: None (occurrence: None)
  Receive Date: 20110719
  Receipt Date: 20100920
  Transmission Date: 20111222
  Serious: No
  Sender: FDA-Public Use
  Company Number: US-KINGPHARMUSA00001-K201001176

PATIENT
  Sex: Female

DRUGS (6)
  1. BACLOFEN [Suspect]
     Dosage: UNK
  2. MINERALS NOS [Suspect]
     Dosage: UNK
  3. VITAMIN TAB [Suspect]
     Dosage: UNK
  4. CALCIUM CARBONATE [Suspect]
  5. LEVOXYL [Suspect]
     Dosage: UNK
     Route: 048
  6. PREMARIN [Suspect]
     Dosage: UNK

REACTIONS (2)
  - DIZZINESS [None]
  - NAUSEA [None]
